FAERS Safety Report 7094492-X (Version None)
Quarter: 2010Q4

REPORT INFORMATION
  Report Type: 
  Country: None (occurrence: None)
  Receive Date: 20101110
  Receipt Date: 20101028
  Transmission Date: 20110411
  Serious: Yes (Other)
  Sender: FDA-Public Use
  Company Number: US-AMGEN-USASP2010002296

PATIENT

DRUGS (1)
  1. NEULASTA [Suspect]

REACTIONS (3)
  - BLOOD PRESSURE DECREASED [None]
  - CONVULSION [None]
  - PRESYNCOPE [None]
